FAERS Safety Report 19273831 (Version 1)
Quarter: 2021Q2

REPORT INFORMATION
  Report Type: Spontaneous
  Country: US (occurrence: US)
  Receive Date: 20210518
  Receipt Date: 20210518
  Transmission Date: 20210717
  Serious: Yes (Other)
  Sender: FDA-Public Use
  Company Number: None

PATIENT
  Age: 13 Year
  Sex: Female
  Weight: 62 kg

DRUGS (4)
  1. IFOSFAMIDE 1800 MG/M2 IV DAILY DAYS 1?5 [Concomitant]
     Dates: start: 20210210, end: 20210214
  2. MESNA 1080 MG/M2 IV DAILY DAYS 1?5 [Concomitant]
     Dates: start: 20210210, end: 20210214
  3. ETOPOSIDE. [Suspect]
     Active Substance: ETOPOSIDE
     Indication: EWING^S SARCOMA
     Route: 042
     Dates: start: 20210210, end: 20210210
  4. EMEND PO [Concomitant]
     Dates: start: 20210210, end: 20210214

REACTIONS (5)
  - Feeling hot [None]
  - Cough [None]
  - Erythema [None]
  - Abdominal pain [None]
  - Flushing [None]

NARRATIVE: CASE EVENT DATE: 20210210
